FAERS Safety Report 5581825-6 (Version None)
Quarter: 2008Q1

REPORT INFORMATION
  Report Type: 
  Country: None (occurrence: None)
  Receive Date: 20080104
  Receipt Date: 20071207
  Transmission Date: 20080703
  Serious: No
  Sender: FDA-Public Use
  Company Number: US-BAYER-200712108BCC

PATIENT
  Age: 49 Year
  Sex: Female
  Weight: 109 kg

DRUGS (6)
  1. ALEVE [Suspect]
     Indication: TOOTHACHE
     Dosage: TOTAL DAILY DOSE: 220 MG  UNIT DOSE: 220 MG
     Route: 048
     Dates: start: 20070628
  2. ALEVE [Suspect]
     Dosage: UNIT DOSE: 220 MG
     Route: 048
     Dates: start: 20070629
  3. HIGH BLOOD PRESSURE MEDICATION [Concomitant]
  4. ALLERGY MEDICATION [Concomitant]
  5. POTASSIUM [Concomitant]
  6. MULTI-VITAMIN [Concomitant]

REACTIONS (2)
  - HYPOAESTHESIA [None]
  - TOOTHACHE [None]
